FAERS Safety Report 19701165 (Version 2)
Quarter: 2021Q3

REPORT INFORMATION
  Report Type: Report from Study
  Country: AU (occurrence: AU)
  Receive Date: 20210814
  Receipt Date: 20210824
  Transmission Date: 20211014
  Serious: Yes (Other)
  Sender: FDA-Public Use
  Company Number: AU-REGENERON PHARMACEUTICALS, INC.-2021-73728

PATIENT

DRUGS (1)
  1. EYLEA [Suspect]
     Active Substance: AFLIBERCEPT
     Indication: NEOVASCULAR AGE-RELATED MACULAR DEGENERATION
     Dosage: INTRAVITREAL INJECTION TO RIGHT EYE
     Route: 031
     Dates: start: 201909

REACTIONS (5)
  - Drug resistance [Not Recovered/Not Resolved]
  - Macular oedema [Unknown]
  - Injection site discomfort [Not Recovered/Not Resolved]
  - Blindness transient [Not Recovered/Not Resolved]
  - Injection site haemorrhage [Not Recovered/Not Resolved]

NARRATIVE: CASE EVENT DATE: 202106
